FAERS Safety Report 12214837 (Version 1)
Quarter: 2016Q1

REPORT INFORMATION
  Report Type: Spontaneous
  Country: US (occurrence: US)
  Receive Date: 20160328
  Receipt Date: 20160328
  Transmission Date: 20160526
  Serious: No
  Sender: FDA-Public Use
  Company Number: US-PFIZER INC-2016033662

PATIENT
  Age: 61 Year
  Sex: Male
  Weight: 78 kg

DRUGS (2)
  1. NEURONTIN [Suspect]
     Active Substance: GABAPENTIN
     Dosage: 100-200 MG
     Route: 065
  2. ELIQUIS [Suspect]
     Active Substance: APIXABAN
     Indication: THROMBOSIS PROPHYLAXIS
     Dosage: 5 MG, 2X/DAY
     Route: 065

REACTIONS (7)
  - Agitation [Unknown]
  - Tremor [Unknown]
  - Feeling abnormal [Unknown]
  - Adverse event [Unknown]
  - Feeling jittery [Unknown]
  - Medication error [Unknown]
  - Anxiety [Unknown]

NARRATIVE: CASE EVENT DATE: 20160112
